FAERS Safety Report 9190588 (Version 1)
Quarter: 2013Q1

REPORT INFORMATION
  Report Type: Spontaneous
  Country: US (occurrence: None)
  Receive Date: 20120703
  Receipt Date: 20120703
  Transmission Date: 20140127
  Serious: Yes (Hospitalization, Other)
  Sender: FDA-Public Use
  Company Number: PHEH2012US005077

PATIENT
  Age: 36 Year
  Sex: Male

DRUGS (4)
  1. GILENYA (FTY)CAPSULE [Suspect]
     Indication: RELAPSING-REMITTING MULTIPLE SCLEROSIS
     Route: 048
     Dates: start: 20120224
  2. FAMPRIDINE (FAMPRIDINE) [Concomitant]
  3. TRIAZOLAM (TRIAZOLAM) [Concomitant]
  4. VENLAFAXINE (VENLAFAXINE) [Concomitant]

REACTIONS (18)
  - Depression [None]
  - Blood pressure increased [None]
  - Limb discomfort [None]
  - Pain in extremity [None]
  - Muscle spasms [None]
  - Fatigue [None]
  - Pain [None]
  - Muscular weakness [None]
  - Hyperreflexia [None]
  - Musculoskeletal stiffness [None]
  - Muscle atrophy [None]
  - Hypotonia [None]
  - Weight decreased [None]
  - Gastroenteritis norovirus [None]
  - Suicidal ideation [None]
  - Diarrhoea [None]
  - Nausea [None]
  - Vomiting [None]
